FAERS Safety Report 6643478-5 (Version None)
Quarter: 2010Q1

REPORT INFORMATION
  Report Type: 
  Country: None (occurrence: None)
  Receive Date: 20100319
  Receipt Date: 20100308
  Transmission Date: 20100710
  Serious: Yes (Hospitalization)
  Sender: FDA-Public Use
  Company Number: NO-WATSON-2010-03142

PATIENT
  Age: 42 Year
  Sex: Female

DRUGS (5)
  1. FLUOXETINE HCL [Suspect]
     Indication: SCHIZOAFFECTIVE DISORDER
     Dosage: 800 MG, SINGLE
     Route: 048
  2. FLUOXETINE HCL [Suspect]
     Dosage: 40 MG, DAILY
     Route: 048
  3. SERTINDOLE [Suspect]
     Indication: SCHIZOAFFECTIVE DISORDER
     Dosage: 1792MG, SINGLE
     Route: 048
  4. SERTINDOLE [Suspect]
     Dosage: 16 MG, DAILY
     Route: 048
  5. ZOPICLONE [Suspect]
     Indication: DRUG USE FOR UNKNOWN INDICATION
     Dosage: UNK

REACTIONS (4)
  - INTENTIONAL OVERDOSE [None]
  - LEUKOCYTOSIS [None]
  - SOMNOLENCE [None]
  - SUICIDE ATTEMPT [None]
